FAERS Safety Report 5690405-3 (Version None)
Quarter: 2008Q1

REPORT INFORMATION
  Report Type: 
  Country: None (occurrence: None)
  Receive Date: 20080331
  Receipt Date: 20080331
  Transmission Date: 20080703
  Serious: Yes (Other)
  Sender: FDA-Public Use
  Company Number: None

PATIENT
  Sex: Female
  Weight: 58.9676 kg

DRUGS (1)
  1. MULTIVITAMIN [Suspect]
     Indication: VITAMIN SUPPLEMENTATION
     Dosage: ONE TABLET PER DAY PO
     Route: 048
     Dates: start: 20080315, end: 20080328

REACTIONS (6)
  - ASTHENIA [None]
  - DIZZINESS [None]
  - LETHARGY [None]
  - NAUSEA [None]
  - SOMNOLENCE [None]
  - STOMACH DISCOMFORT [None]
